FAERS Safety Report 7350644-2 (Version None)
Quarter: 2011Q1

REPORT INFORMATION
  Report Type: 
  Country: None (occurrence: None)
  Receive Date: 20110314
  Receipt Date: 20100806
  Transmission Date: 20110831
  Serious: Yes (Hospitalization, Other)
  Sender: FDA-Public Use
  Company Number: US-BAYER-200942711NA

PATIENT
  Sex: Female
  Weight: 111.11 kg

DRUGS (6)
  1. YAZ [Suspect]
     Indication: PRODUCT USED FOR UNKNOWN INDICATION
     Route: 048
     Dates: start: 20080601, end: 20080703
  2. LEVOTHYROXINE [Concomitant]
     Dosage: 75 MCG/24HR, UNK
  3. IBUPROFEN [Concomitant]
     Indication: PAIN
  4. FENOFIBRATE [Concomitant]
     Indication: HYPERLIPIDAEMIA
  5. REQUIP [Concomitant]
     Indication: RESTLESS LEGS SYNDROME
  6. MIDRIN [Concomitant]
     Indication: MIGRAINE

REACTIONS (3)
  - THROMBOSIS [None]
  - INJURY [None]
  - CEREBROVASCULAR ACCIDENT [None]
